FAERS Safety Report 9774369 (Version 1)
Quarter: 2013Q4

REPORT INFORMATION
  Report Type: Spontaneous
  Country: CA (occurrence: CA)
  Receive Date: 20131220
  Receipt Date: 20131220
  Transmission Date: 20140711
  Serious: Yes (Life-Threatening, Hospitalization)
  Sender: FDA-Public Use
  Company Number: CA-JNJFOC-20131211163

PATIENT
  Age: 68 Year
  Sex: Male
  Weight: 125 kg

DRUGS (7)
  1. XARELTO [Suspect]
     Indication: PRODUCT USED FOR UNKNOWN INDICATION
     Route: 048
  2. CIPRALEX [Concomitant]
     Route: 065
  3. VERAPAMIL [Concomitant]
     Route: 065
  4. PREVACID [Concomitant]
     Route: 065
  5. SYMBICORT [Concomitant]
     Route: 065
  6. ATACAND [Concomitant]
     Route: 065
  7. CRESTOR [Concomitant]
     Route: 065

REACTIONS (1)
  - Pulmonary embolism [Recovered/Resolved]
